FAERS Safety Report 10007650 (Version 3)
Quarter: 2014Q2

REPORT INFORMATION
  Report Type: Spontaneous
  Country: US (occurrence: US)
  Receive Date: 20140313
  Receipt Date: 20140410
  Transmission Date: 20141212
  Serious: Yes (Death)
  Sender: FDA-Public Use
  Company Number: US-PFIZER INC-2014071471

PATIENT
  Age: 51 Year
  Sex: Male

DRUGS (8)
  1. XALKORI [Suspect]
     Indication: LUNG CANCER METASTATIC
     Dosage: 250 MG, 2X/DAY
     Route: 048
     Dates: start: 20131223, end: 201402
  2. MS CONTIN [Concomitant]
     Dosage: 15 MG, UNK
  3. OXYCODONE HYDROCHLORIDE [Concomitant]
     Dosage: UNK
  4. VENTOLIN HFA [Concomitant]
     Dosage: UNK
  5. PREDNISONE [Concomitant]
     Dosage: 10 MG, UNK
  6. OXYCODONE [Concomitant]
     Dosage: 10 MG, UNK
  7. ZOFRAN [Concomitant]
     Dosage: 8 MG, UNK
  8. LASIX [Concomitant]
     Dosage: 20 MG, UNK

REACTIONS (1)
  - Death [Fatal]
